FAERS Safety Report 15136134 (Version 10)
Quarter: 2018Q3

REPORT INFORMATION
  Report Type: Spontaneous
  Country: SK (occurrence: SK)
  Receive Date: 20180712
  Receipt Date: 20180912
  Transmission Date: 20181010
  Serious: Yes (Other)
  Sender: FDA-Public Use
  Company Number: SK-PFIZER INC-2018278951

PATIENT
  Age: 62 Year
  Sex: Female
  Weight: 72 kg

DRUGS (10)
  1. IVABRADINE [Suspect]
     Active Substance: IVABRADINE
     Indication: ACUTE MYOCARDIAL INFARCTION
     Dosage: 5 MG, QD
     Route: 048
  2. COENZYME Q10 [Suspect]
     Active Substance: UBIDECARENONE
     Indication: MYALGIA
  3. FENOFIBRATE. [Suspect]
     Active Substance: FENOFIBRATE
     Indication: ACUTE MYOCARDIAL INFARCTION
     Dosage: 215 MG, UNK
     Route: 048
  4. ACETYLSALICYLIC ACID [Suspect]
     Active Substance: ASPIRIN
     Indication: ACUTE MYOCARDIAL INFARCTION
     Dosage: UNK
  5. ATORVASTATIN CALCIUM. [Suspect]
     Active Substance: ATORVASTATIN CALCIUM
     Dosage: 80 MG, QD
     Dates: start: 201502
  6. FUROSEMIDE. [Suspect]
     Active Substance: FUROSEMIDE
     Indication: ACUTE MYOCARDIAL INFARCTION
     Dosage: 250 MG
     Route: 048
  7. CARVEDILOL. [Suspect]
     Active Substance: CARVEDILOL
     Indication: ACUTE MYOCARDIAL INFARCTION
     Dosage: 12.5 MG, QD
     Route: 048
  8. DIGOXIN. [Suspect]
     Active Substance: DIGOXIN
     Indication: ACUTE MYOCARDIAL INFARCTION
     Dosage: UNK
     Route: 048
  9. ATORVASTATIN CALCIUM. [Suspect]
     Active Substance: ATORVASTATIN CALCIUM
     Indication: ACUTE MYOCARDIAL INFARCTION
     Dosage: 80 MG, QD
     Route: 048
     Dates: start: 2012, end: 2012
  10. COENZYME Q10 [Suspect]
     Active Substance: UBIDECARENONE
     Indication: PROPHYLAXIS
     Dosage: 30 MG, 2X/DAY
     Dates: start: 2015

REACTIONS (3)
  - Immobile [Unknown]
  - Myalgia [Unknown]
  - Blood creatine phosphokinase increased [Unknown]

NARRATIVE: CASE EVENT DATE: 2012
